FAERS Safety Report 6157908-9 (Version None)
Quarter: 2009Q2

REPORT INFORMATION
  Report Type: 
  Country: None (occurrence: None)
  Receive Date: 20090417
  Receipt Date: 20090407
  Transmission Date: 20091009
  Serious: Yes (Hospitalization)
  Sender: FDA-Public Use
  Company Number: FR-SANOFI-SYNTHELABO-A02200900933

PATIENT
  Age: 61 Year
  Sex: Female

DRUGS (4)
  1. IXPRIM [Concomitant]
     Indication: DRUG USE FOR UNKNOWN INDICATION
     Dosage: UNK
     Route: 048
  2. RENITEC [Concomitant]
     Indication: DRUG USE FOR UNKNOWN INDICATION
     Dosage: UNK
     Route: 048
  3. BI-PROFENID [Concomitant]
     Indication: DRUG USE FOR UNKNOWN INDICATION
     Dosage: UNK
     Route: 048
     Dates: start: 20090304, end: 20090304
  4. XATRAL [Suspect]
     Indication: CATHETER REMOVAL
     Route: 048
     Dates: start: 20090304, end: 20090304

REACTIONS (5)
  - DIZZINESS [None]
  - HYPOTENSION [None]
  - OXYGEN SATURATION DECREASED [None]
  - PALLOR [None]
  - SHOCK [None]
